FAERS Safety Report 4423180-0 (Version None)
Quarter: 2004Q3

REPORT INFORMATION
  Report Type: 
  Country: None (occurrence: None)
  Receive Date: 20040805
  Receipt Date: 20040727
  Transmission Date: 20050211
  Serious: Yes (Other)
  Sender: FDA-Public Use
  Company Number: 2004051071

PATIENT
  Age: 8 Year
  Sex: Female

DRUGS (3)
  1. ZITHROMAX [Suspect]
     Indication: ILL-DEFINED DISORDER
     Dosage: 250 MG (250 MG, 1 IN 1 D), ORAL
     Route: 048
  2. IBUPROFEN [Concomitant]
  3. PREDNISONE [Concomitant]

REACTIONS (2)
  - DRUG HYPERSENSITIVITY [None]
  - EYE SWELLING [None]
